FAERS Safety Report 14781306 (Version 2)
Quarter: 2018Q2

REPORT INFORMATION
  Report Type: Spontaneous
  Country: US (occurrence: US)
  Receive Date: 20180419
  Receipt Date: 20180518
  Transmission Date: 20180711
  Serious: No
  Sender: FDA-Public Use
  Company Number: US-JNJFOC-20180408212

PATIENT
  Sex: Male

DRUGS (9)
  1. BACTRIM [Concomitant]
     Active Substance: SULFAMETHOXAZOLE\TRIMETHOPRIM
  2. MORPHINE SULFATE. [Concomitant]
     Active Substance: MORPHINE SULFATE
  3. CLARITIN [Concomitant]
     Active Substance: LORATADINE
  4. ADDERALL [Concomitant]
     Active Substance: AMPHETAMINE ASPARTATE\AMPHETAMINE SULFATE\DEXTROAMPHETAMINE SACCHARATE\DEXTROAMPHETAMINE SULFATE
  5. ACYCLOVIR. [Concomitant]
     Active Substance: ACYCLOVIR
  6. FLONASE [Concomitant]
     Active Substance: FLUTICASONE PROPIONATE
  7. PHENERGAN [Concomitant]
     Active Substance: PROMETHAZINE HYDROCHLORIDE
  8. IMBRUVICA [Suspect]
     Active Substance: IBRUTINIB
     Indication: CHRONIC LYMPHOCYTIC LEUKAEMIA
     Dosage: EXPDT=30-SEP-2020
     Route: 048
     Dates: start: 20171228, end: 201803
  9. RITUXAN [Concomitant]
     Active Substance: RITUXIMAB

REACTIONS (1)
  - Drug ineffective [Unknown]
